FAERS Safety Report 18724485 (Version 1)
Quarter: 2021Q1

REPORT INFORMATION
  Report Type: Spontaneous
  Country: PL (occurrence: PL)
  Receive Date: 20210111
  Receipt Date: 20210111
  Transmission Date: 20210419
  Serious: Yes (Hospitalization)
  Sender: FDA-Public Use
  Company Number: PL-TEVA-2021-PL-1866745

PATIENT
  Age: 92 Year
  Sex: Female
  Weight: 52 kg

DRUGS (2)
  1. LEVOXA [Suspect]
     Active Substance: LEVOFLOXACIN
     Indication: PNEUMONIA
     Dosage: 500MG
     Route: 042
     Dates: start: 20200221, end: 20200223
  2. LEVOXA [Suspect]
     Active Substance: LEVOFLOXACIN
     Dosage: 750MG
     Route: 042
     Dates: start: 20200221, end: 20200223

REACTIONS (4)
  - Altered state of consciousness [Recovering/Resolving]
  - Delusion [Recovering/Resolving]
  - Hallucination [Recovering/Resolving]
  - Disorientation [Recovering/Resolving]

NARRATIVE: CASE EVENT DATE: 20200222
